FAERS Safety Report 7453124-9 (Version None)
Quarter: 2011Q2

REPORT INFORMATION
  Report Type: 
  Country: None (occurrence: None)
  Receive Date: 20110502
  Receipt Date: 20101117
  Transmission Date: 20111010
  Serious: No
  Sender: FDA-Public Use
  Company Number: US-ASTRAZENECA-2010SE54939

PATIENT
  Age: 47 Year
  Sex: Female
  Weight: 81.6 kg

DRUGS (3)
  1. NEXIUM [Suspect]
     Indication: ULCER
     Route: 048
     Dates: start: 20080101, end: 20100701
  2. AVALIDE [Concomitant]
     Indication: HYPERTENSION
     Route: 048
  3. OMEPRAZOLE [Suspect]
     Route: 048

REACTIONS (7)
  - FATIGUE [None]
  - LIVER DISORDER [None]
  - WEIGHT INCREASED [None]
  - BLOOD IRON INCREASED [None]
  - DRUG DOSE OMISSION [None]
  - HEPATIC PAIN [None]
  - ANAEMIA [None]
